FAERS Safety Report 7720575-4 (Version None)
Quarter: 2011Q3

REPORT INFORMATION
  Report Type: 
  Country: None (occurrence: None)
  Receive Date: 20110825
  Receipt Date: 20110811
  Transmission Date: 20111222
  Serious: Yes (Hospitalization)
  Sender: FDA-Public Use
  Company Number: 15961634

PATIENT
  Age: 86 Year
  Sex: Male

DRUGS (9)
  1. INSULIN [Concomitant]
  2. NITRODERM [Concomitant]
  3. ACESISTEM (ENALAPRIL MALEATE + HCTZ) [Concomitant]
  4. SEQUACOR (BISOPROLOL FUMARATE) [Concomitant]
  5. FOSAVANCE (ALENDRONATE SODIUM + COLECALCIFEROL) [Concomitant]
  6. COUMADIN [Suspect]
     Indication: CARDIAC VALVE PROSTHESIS USER
     Dosage: 20 MILLIGRAM 1 WEEK ORAL
     Route: 048
     Dates: start: 19870210
  7. SIMVASTATIN [Concomitant]
  8. AMARYL [Concomitant]
  9. OMEPRAZOLE [Concomitant]

REACTIONS (1)
  - INTERNATIONAL NORMALISED RATIO INCREASED [None]
